FAERS Safety Report 20186396 (Version 1)
Quarter: 2021Q4

REPORT INFORMATION
  Report Type: Spontaneous
  Country: US (occurrence: US)
  Receive Date: 20211215
  Receipt Date: 20211215
  Transmission Date: 20220303
  Serious: No
  Sender: FDA-Public Use
  Company Number: US-RECKITT BENCKISER HEALTHCARE INT LIMITED-RB-88892-2021

PATIENT
  Age: 6 Year
  Sex: Female

DRUGS (1)
  1. DELSYM AND CHILDRENS DELSYM [Suspect]
     Active Substance: DEXTROMETHORPHAN
     Indication: Product used for unknown indication
     Dosage: UNK, TWO DOSE IN LESS THEN 12 HOUR
     Route: 065
     Dates: start: 20210512, end: 20210512

REACTIONS (1)
  - Accidental overdose [Recovered/Resolved]
